FAERS Safety Report 9515475 (Version 1)
Quarter: 2013Q3

REPORT INFORMATION
  Report Type: Spontaneous
  Country: GB (occurrence: GB)
  Receive Date: 20130911
  Receipt Date: 20130911
  Transmission Date: 20140515
  Serious: Yes (Other)
  Sender: FDA-Public Use
  Company Number: PHFR2013GB005113

PATIENT
  Age: 36 Year
  Sex: Female

DRUGS (1)
  1. CLOZAPINE [Suspect]
     Dosage: 300 MG, UNK
     Route: 048
     Dates: start: 20130815, end: 20130815

REACTIONS (4)
  - Paralysis [Recovered/Resolved]
  - Wrong patient received medication [Recovered/Resolved]
  - Hypersomnia [Recovered/Resolved]
  - Overdose [Recovered/Resolved]
